FAERS Safety Report 21373267 (Version 1)
Quarter: 2022Q3

REPORT INFORMATION
  Report Type: Spontaneous
  Country: US (occurrence: US)
  Receive Date: 20220924
  Receipt Date: 20220924
  Transmission Date: 20221027
  Serious: Yes (Hospitalization)
  Sender: FDA-Public Use
  Company Number: US-CTI BIOPHARMA-2022US02810

PATIENT

DRUGS (4)
  1. VONJO [Suspect]
     Active Substance: PACRITINIB
     Indication: Myelofibrosis
     Dosage: 200 MILLIGRAM, BID
     Route: 048
     Dates: start: 20220422
  2. CODEINE [Concomitant]
     Active Substance: CODEINE
     Indication: Cough
     Dosage: UNK
  3. BENZONATATE [Concomitant]
     Active Substance: BENZONATATE
     Indication: Cough
  4. FUROSEMIDE [Concomitant]
     Active Substance: FUROSEMIDE
     Indication: Oedema
     Dosage: 20 MILLIGRAM, BID
     Dates: start: 20220503

REACTIONS (14)
  - Pyrexia [Unknown]
  - Haemoglobin decreased [Unknown]
  - Platelet count increased [Unknown]
  - Red blood cell count decreased [Unknown]
  - Haematocrit decreased [Unknown]
  - Cough [Unknown]
  - Abnormal behaviour [Unknown]
  - Splenomegaly [None]
  - Functional gastrointestinal disorder [None]
  - Pain [None]
  - Platelet count decreased [None]
  - Epistaxis [None]
  - Product complaint [None]
  - Drug ineffective [Unknown]

NARRATIVE: CASE EVENT DATE: 20220101
